FAERS Safety Report 11010419 (Version 1)
Quarter: 2015Q2

REPORT INFORMATION
  Report Type: Spontaneous
  Country: US (occurrence: US)
  Receive Date: 20150410
  Receipt Date: 20150410
  Transmission Date: 20150821
  Serious: No
  Sender: FDA-Public Use
  Company Number: US-GLAXOSMITHKLINE-US2015047081

PATIENT
  Age: 70 Year
  Sex: Female

DRUGS (18)
  1. BREO ELLIPTA [Suspect]
     Active Substance: FLUTICASONE FUROATE\VILANTEROL TRIFENATATE
     Indication: ASTHMA
     Dosage: 1 PUFF(S), 1D
     Route: 055
     Dates: start: 20150407
  2. PANTOPRAZOLE [Concomitant]
     Active Substance: PANTOPRAZOLE SODIUM
  3. COD LIVER OIL [Concomitant]
     Active Substance: COD LIVER OIL
  4. GABAPENTIN. [Concomitant]
     Active Substance: GABAPENTIN
  5. LUTEIN [Concomitant]
     Active Substance: LUTEIN
  6. CARVEDILOL. [Concomitant]
     Active Substance: CARVEDILOL
  7. OCUVITE [Concomitant]
     Active Substance: VITAMINS
  8. SINGULAIR [Concomitant]
     Active Substance: MONTELUKAST SODIUM
  9. STOOL SOFTENER [Concomitant]
     Active Substance: DOCUSATE CALCIUM
  10. FLAXSEED [Concomitant]
     Active Substance: FLAX SEED
  11. LISINOPRIL. [Concomitant]
     Active Substance: LISINOPRIL
  12. MVI [Concomitant]
     Active Substance: VITAMINS
  13. FIORICET [Concomitant]
     Active Substance: ACETAMINOPHEN\BUTALBITAL\CAFFEINE
  14. PRAVACHOL [Concomitant]
     Active Substance: PRAVASTATIN SODIUM
  15. LAMICTAL [Suspect]
     Active Substance: LAMOTRIGINE
     Indication: MIGRAINE
     Dosage: 25 MG, 1D
     Route: 048
     Dates: start: 20150407
  16. CLONIDINE. [Concomitant]
     Active Substance: CLONIDINE
  17. DIAZEPAM. [Concomitant]
     Active Substance: DIAZEPAM
  18. SPIRONOLACTONE. [Concomitant]
     Active Substance: SPIRONOLACTONE

REACTIONS (4)
  - Fall [Recovered/Resolved]
  - Drug ineffective [Not Recovered/Not Resolved]
  - Dizziness [Recovered/Resolved]
  - Palpitations [Recovered/Resolved]

NARRATIVE: CASE EVENT DATE: 20150407
